FAERS Safety Report 5574820-4 (Version None)
Quarter: 2007Q4

REPORT INFORMATION
  Report Type: 
  Country: None (occurrence: None)
  Receive Date: 20071227
  Receipt Date: 20071217
  Transmission Date: 20080405
  Serious: Yes (Hospitalization)
  Sender: FDA-Public Use
  Company Number: FR-ABBOTT-07P-056-0430728-00

PATIENT
  Age: 32 Year
  Sex: Female

DRUGS (6)
  1. DEPAKENE [Suspect]
     Indication: PARTIAL SEIZURES
     Route: 048
     Dates: start: 20020101, end: 20070201
  2. DEPAKENE [Suspect]
     Route: 048
     Dates: start: 20070301, end: 20070701
  3. DEPAKENE [Suspect]
     Route: 048
     Dates: start: 20070701
  4. OXCARBAZEPINE [Suspect]
     Indication: PARTIAL SEIZURES
     Route: 048
     Dates: start: 20020101, end: 20070201
  5. OXCARBAZEPINE [Suspect]
     Route: 048
     Dates: start: 20070301, end: 20070701
  6. OXCARBAZEPINE [Suspect]
     Route: 048
     Dates: start: 20070701

REACTIONS (6)
  - DRUG WITHDRAWAL SYNDROME [None]
  - HALLUCINATION, OLFACTORY [None]
  - HALLUCINATION, SYNAESTHETIC [None]
  - HALLUCINATIONS, MIXED [None]
  - SCHIZOPHRENIA, PARANOID TYPE [None]
  - WEIGHT INCREASED [None]
